FAERS Safety Report 6983184-0 (Version None)
Quarter: 2010Q3

REPORT INFORMATION
  Report Type: 
  Country: None (occurrence: None)
  Receive Date: 20100914
  Receipt Date: 20100806
  Transmission Date: 20110219
  Serious: No
  Sender: FDA-Public Use
  Company Number: US-PFIZER INC-2010081917

PATIENT
  Sex: Female
  Weight: 62.132 kg

DRUGS (5)
  1. LYRICA [Suspect]
     Indication: BURNING SENSATION
     Dosage: 75 MG, 2X/DAY
     Route: 048
     Dates: start: 20100621
  2. LYRICA [Suspect]
     Indication: GAIT DISTURBANCE
  3. DEPAKENE [Concomitant]
     Indication: MOOD SWINGS
     Dosage: UNK
  4. ATIVAN [Concomitant]
     Indication: SLEEP DISORDER
     Dosage: UNK
  5. LORAZEPAM [Concomitant]
     Indication: SLEEP DISORDER
     Dosage: UNK

REACTIONS (4)
  - ANXIETY [None]
  - BLISTER [None]
  - CRYING [None]
  - IRRITABILITY [None]
